FAERS Safety Report 4773092-8 (Version None)
Quarter: 2005Q3

REPORT INFORMATION
  Report Type: 
  Country: None (occurrence: None)
  Receive Date: 20050916
  Receipt Date: 20050909
  Transmission Date: 20060218
  Serious: Yes (Death, Hospitalization)
  Sender: FDA-Public Use
  Company Number: 430033M05USA

PATIENT
  Age: 33 Year
  Sex: Female

DRUGS (2)
  1. NOVANTRONE [Suspect]
     Indication: ACUTE LEUKAEMIA
     Dosage: CYCLE,
     Dates: start: 20050720, end: 20050724
  2. NOVANTRONE [Suspect]
     Indication: ACUTE LEUKAEMIA
     Dosage: CYCLE,
     Dates: start: 20050804, end: 20050808

REACTIONS (11)
  - BRAIN OEDEMA [None]
  - CATHETER RELATED INFECTION [None]
  - CEREBRAL ISCHAEMIA [None]
  - CONFUSIONAL STATE [None]
  - ENTEROCOCCAL INFECTION [None]
  - INFECTION [None]
  - LOSS OF CONSCIOUSNESS [None]
  - MENTAL STATUS CHANGES [None]
  - NUCLEAR MAGNETIC RESONANCE IMAGING BRAIN ABNORMAL [None]
  - POST PROCEDURAL COMPLICATION [None]
  - VASCULITIS CEREBRAL [None]
